FAERS Safety Report 22158879 (Version 1)
Quarter: 2023Q1

REPORT INFORMATION
  Report Type: Report from Study
  Country: CO (occurrence: CO)
  Receive Date: 20230331
  Receipt Date: 20230331
  Transmission Date: 20230418
  Serious: Yes (Other)
  Sender: FDA-Public Use
  Company Number: CO-BAYER-2023A041627

PATIENT
  Sex: Female

DRUGS (2)
  1. EYLEA [Suspect]
     Active Substance: AFLIBERCEPT
     Indication: Age-related macular degeneration
     Dosage: 2 MG, ONCE (2 MG INTRAVITREAL MONTHLY FOR 3 MONTHS, AND THEN EVERY 2 MONTHS); SOL FOR INJ; 40MG/ML
     Route: 031
     Dates: start: 20201127, end: 20201127
  2. EYLEA [Suspect]
     Active Substance: AFLIBERCEPT
     Dosage: 2 MG, ONCE (2 MG INTRAVITREAL MONTHLY FOR 3 MONTHS, AND THEN EVERY 2 MONTHS); SOL FOR INJ, 40MG/ML
     Route: 031
     Dates: start: 20230317

REACTIONS (1)
  - Eye laser surgery [Unknown]

NARRATIVE: CASE EVENT DATE: 20230317
